FAERS Safety Report 5088361-4 (Version None)
Quarter: 2006Q3

REPORT INFORMATION
  Report Type: 
  Country: None (occurrence: None)
  Receive Date: 20060822
  Receipt Date: 20060808
  Transmission Date: 20061208
  Serious: Yes (Hospitalization)
  Sender: FDA-Public Use
  Company Number: 2006RL000289

PATIENT
  Age: 73 Year
  Sex: Male

DRUGS (14)
  1. PROPAFENONE HCL [Suspect]
     Indication: ARRHYTHMIA
     Dosage: 300 MG;QD; UNK
     Dates: start: 20060419, end: 20060606
  2. ESOMEPRAZOLE MAGNESIUM [Concomitant]
  3. LATANOPROST [Concomitant]
  4. BRIMONIDINE TARTRATE [Concomitant]
  5. COSOPT [Concomitant]
  6. FENNEL [Concomitant]
  7. ANETHOLE [Concomitant]
  8. CAMOMILE [Concomitant]
  9. BASIL [Concomitant]
  10. MINT [Concomitant]
  11. BALM-MINT [Concomitant]
  12. SALVIA [Concomitant]
  13. PIFLESS OF FENNEL (SIC) [Concomitant]
  14. LIQUORICE [Concomitant]

REACTIONS (2)
  - HEPATITIS CHOLESTATIC [None]
  - PYREXIA [None]
